FAERS Safety Report 10547811 (Version 1)
Quarter: 2014Q4

REPORT INFORMATION
  Report Type: Spontaneous
  Country: US (occurrence: None)
  Receive Date: 20141024
  Receipt Date: 20141024
  Transmission Date: 20150529
  Serious: Yes (Hospitalization)
  Sender: FDA-Public Use
  Company Number: None

PATIENT
  Age: 63 Year
  Sex: Male

DRUGS (1)
  1. SULFAMETHOXAZOLE/TRIMETHOPRIM [Suspect]
     Active Substance: SULFAMETHOXAZOLE\TRIMETHOPRIM
     Indication: URINARY TRACT INFECTION
     Route: 048
     Dates: start: 20140509, end: 20140606

REACTIONS (12)
  - Diabetic nephropathy [None]
  - Leukocytosis [None]
  - Fatigue [None]
  - Acute kidney injury [None]
  - Kidney fibrosis [None]
  - Cardiac failure congestive [None]
  - Swelling [None]
  - Tubulointerstitial nephritis [None]
  - Dysgeusia [None]
  - Decreased appetite [None]
  - Renal tubular necrosis [None]
  - Dyspnoea [None]

NARRATIVE: CASE EVENT DATE: 20140527
